FAERS Safety Report 6539197-6 (Version None)
Quarter: 2010Q1

REPORT INFORMATION
  Report Type: 
  Country: None (occurrence: None)
  Receive Date: 20100112
  Receipt Date: 20100106
  Transmission Date: 20100710
  Serious: Yes (Other)
  Sender: FDA-Public Use
  Company Number: 2009SP027811

PATIENT
  Age: 24 Year
  Sex: Female

DRUGS (10)
  1. NOSONEX         (MOMETASONE FUROATE (NASAL)) [Suspect]
     Indication: RHINITIS ALLERGIC
     Dosage: NAS; 2DF;QD;NAS
     Route: 045
     Dates: start: 20080119, end: 20080121
  2. NOSONEX         (MOMETASONE FUROATE (NASAL)) [Suspect]
     Indication: RHINITIS ALLERGIC
     Dosage: NAS; 2DF;QD;NAS
     Route: 045
     Dates: start: 20060101
  3. DESLORATADINE [Suspect]
     Indication: RHINITIS ALLERGIC
     Dosage: PO; 1 DF; QD;PO
     Route: 048
     Dates: start: 20080119, end: 20080121
  4. DESLORATADINE [Suspect]
     Indication: RHINITIS ALLERGIC
     Dosage: PO; 1 DF; QD;PO
     Route: 048
     Dates: start: 20060101
  5. FLUANXOL (FLUPENTIXOL) [Concomitant]
  6. VENTOLIN [Concomitant]
  7. SERETIDE [Concomitant]
  8. RHINOFLUIMUCIL [Concomitant]
  9. POLERY [Concomitant]
  10. MONOZECLAR [Concomitant]

REACTIONS (3)
  - DELUSION [None]
  - HALLUCINATION [None]
  - PSYCHIATRIC DECOMPENSATION [None]
